FAERS Safety Report 8104997-8 (Version None)
Quarter: 2012Q1

REPORT INFORMATION
  Report Type: 
  Country: None (occurrence: None)
  Receive Date: 20120201
  Receipt Date: 20120124
  Transmission Date: 20120608
  Serious: Yes (Hospitalization)
  Sender: FDA-Public Use
  Company Number: GB-GLAXOSMITHKLINE-B0760549B

PATIENT
  Sex: Female

DRUGS (16)
  1. SUDOCREM [Concomitant]
     Dates: start: 20111105
  2. LAPATINIB [Suspect]
     Indication: BREAST CANCER METASTATIC
     Route: 048
     Dates: start: 20111020
  3. ALBUTEROL SULFATE AUTOHALER [Concomitant]
     Indication: ASTHMA
     Dates: start: 19880101
  4. DEXAMETHASONE [Concomitant]
     Dates: start: 20111019
  5. NEULASTA [Concomitant]
     Dates: start: 20111021
  6. FLUCONAZOLE [Concomitant]
     Dates: start: 20111024
  7. DOCETAXEL [Suspect]
     Indication: BREAST CANCER METASTATIC
     Route: 042
     Dates: start: 20111020
  8. BECLOMETHASONE DIPROPIONATE [Concomitant]
     Indication: ASTHMA
     Dates: start: 19880101
  9. GRANISETRON [Concomitant]
     Dates: start: 20111020
  10. LANSOPRAZOLE [Concomitant]
     Dates: start: 20111025
  11. HEALTH SUPPLEMENT [Concomitant]
     Dates: start: 20111120
  12. LOPERAMIDE HCL [Concomitant]
     Dates: start: 20111021
  13. ACETAMINOPHEN [Concomitant]
     Dates: start: 20111021
  14. LEVOFLOXACIN [Concomitant]
     Dates: start: 20111024
  15. BENDROFLUAZIDE [Concomitant]
     Indication: HYPERTENSION
  16. DOMPERIDONE [Concomitant]
     Dates: start: 20111020

REACTIONS (2)
  - VOMITING [None]
  - ABDOMINAL PAIN [None]
